FAERS Safety Report 4305415-8 (Version None)
Quarter: 2004Q1

REPORT INFORMATION
  Report Type: 
  Country: None (occurrence: None)
  Receive Date: 20040226
  Receipt Date: 20031103
  Transmission Date: 20041129
  Serious: Yes (Other)
  Sender: FDA-Public Use
  Company Number: US-BRISTOL-MYERS SQUIBB COMPANY-12425567

PATIENT
  Age: 63 Year
  Sex: Female
  Weight: 72 kg

DRUGS (3)
  1. TAXOL [Suspect]
     Indication: BREAST CANCER
     Route: 042
     Dates: start: 20030710
  2. ARIMIDEX [Concomitant]
  3. BENADRYL [Concomitant]
     Indication: PREMEDICATION
     Route: 042

REACTIONS (1)
  - NEUROPATHY PERIPHERAL [None]
